FAERS Safety Report 7529415-X (Version None)
Quarter: 2011Q2

REPORT INFORMATION
  Report Type: 
  Country: None (occurrence: None)
  Receive Date: 20110531
  Receipt Date: 20110520
  Transmission Date: 20111010
  Serious: Yes (Life-Threatening, Other)
  Sender: FDA-Public Use
  Company Number: 2011P1006504

PATIENT
  Age: 62 Year
  Sex: Male
  Weight: 112.6 kg

DRUGS (23)
  1. IBUPROFEN [Concomitant]
  2. HEPARIN [Concomitant]
  3. ATENOLOL [Concomitant]
  4. ZOCOR [Concomitant]
  5. METFORMIN HCL [Concomitant]
  6. OMEPRAZOLE [Concomitant]
  7. NPH INSULIN [Concomitant]
  8. METOPROLOL [Concomitant]
  9. ASPIRIN [Concomitant]
  10. PLAVIX [Concomitant]
  11. LISINOPRIL [Concomitant]
  12. WARFARIN SODIUM [Suspect]
     Indication: ANGIOPATHY
     Dosage: 5 MG;QD;PO
     Route: 048
     Dates: start: 20110513, end: 20110515
  13. MULTI-VITAMIN [Concomitant]
  14. METHYLPREDNISOLONE ACETATE [Concomitant]
  15. IPRATROPIUM BROMIDE [Concomitant]
  16. ZETIA [Concomitant]
  17. FOLIC ACID [Concomitant]
  18. THIAMINE [Concomitant]
  19. ASPART INSULIN [Concomitant]
  20. LEVALBUTEROL HCL [Concomitant]
  21. EZETIMIBE 10MG/SYMVASTATIN 80 MG [Concomitant]
  22. GLIPIZIDE [Concomitant]
  23. VICODIN [Concomitant]

REACTIONS (1)
  - INTERNATIONAL NORMALISED RATIO INCREASED [None]
